FAERS Safety Report 4449701-X (Version None)
Quarter: 2004Q3

REPORT INFORMATION
  Report Type: 
  Country: None (occurrence: None)
  Receive Date: 20040913
  Receipt Date: 20040830
  Transmission Date: 20050211
  Serious: Yes (Hospitalization)
  Sender: FDA-Public Use
  Company Number: TNZIE200400085

PATIENT
  Sex: Male

DRUGS (2)
  1. INNOHEP (INJECTION) (TINZAPARIN SODIUM INJECTION) [Suspect]
     Indication: TRANSIENT ISCHAEMIC ATTACK
     Dosage: 14000 IU (14000 IU, ONCE DAILY), SUBCUTANEOUS
     Route: 058
     Dates: start: 20040401, end: 20040601
  2. INNOHEP (INJECTION) (TINZAPARIN SODIUM INJECTION) [Suspect]
     Indication: TRANSIENT ISCHAEMIC ATTACK
     Dosage: 14000 IU (14000 IU, ONCE DAILY), SUBCUTANEOUS
     Route: 058
     Dates: start: 20040604

REACTIONS (4)
  - DRUG EXPOSURE DURING PREGNANCY [None]
  - DRUG EXPOSURE VIA BREAST MILK [None]
  - FAILURE TO THRIVE [None]
  - WEIGHT GAIN POOR [None]
